FAERS Safety Report 6596913-5 (Version None)
Quarter: 2010Q1

REPORT INFORMATION
  Report Type: 
  Country: None (occurrence: None)
  Receive Date: 20100212
  Receipt Date: 20100129
  Transmission Date: 20100710
  Serious: Yes (Congenital Anomaly)
  Sender: FDA-Public Use
  Company Number: 8038498

PATIENT
  Sex: Male

DRUGS (4)
  1. KEPPRA [Suspect]
     Indication: EPILEPSY
     Dosage: 2000 MG, DAILY TRANSPLACENTAL
     Route: 064
     Dates: end: 20071112
  2. TUMS [Concomitant]
  3. VITAMIN TAB [Concomitant]
  4. FOLIC ACID [Concomitant]

REACTIONS (7)
  - ASTIGMATISM [None]
  - DEVELOPMENTAL DELAY [None]
  - FOOT DEFORMITY [None]
  - HETEROPHORIA [None]
  - MATERNAL DRUGS AFFECTING FOETUS [None]
  - POSITIONAL PLAGIOCEPHALY [None]
  - TORTICOLLIS [None]
